FAERS Safety Report 10761597 (Version 1)
Quarter: 2015Q1

REPORT INFORMATION
  Report Type: Spontaneous
  Country: BR (occurrence: BR)
  Receive Date: 20150204
  Receipt Date: 20150204
  Transmission Date: 20150721
  Serious: Yes (Other)
  Sender: FDA-Public Use
  Company Number: BR-ELI_LILLY_AND_COMPANY-BR201411006995

PATIENT
  Sex: Male

DRUGS (9)
  1. HUMULIN R [Suspect]
     Active Substance: INSULIN HUMAN
     Dosage: UNK, OTHER
     Route: 058
  2. HUMULIN N [Suspect]
     Active Substance: INSULIN HUMAN
     Indication: DIABETES MELLITUS
     Dosage: 30 DF, EACH MORNING
     Route: 058
     Dates: start: 2004
  3. HUMULIN N [Suspect]
     Active Substance: INSULIN HUMAN
     Dosage: 20 DF, EACH EVENING
     Route: 058
     Dates: start: 2004
  4. HALDOL [Concomitant]
     Active Substance: HALOPERIDOL
     Indication: MENTAL DISORDER
     Dosage: UNK, UNKNOWN
     Route: 065
  5. HUMULIN R [Suspect]
     Active Substance: INSULIN HUMAN
     Indication: DIABETES MELLITUS
     Dosage: UNK, OTHER
     Route: 058
     Dates: start: 2004
  6. HUMULIN N [Suspect]
     Active Substance: INSULIN HUMAN
     Dosage: 30 DF, EACH MORNING
     Route: 058
  7. HUMULIN N [Suspect]
     Active Substance: INSULIN HUMAN
     Dosage: 20 DF, EACH EVENING
     Route: 058
  8. RIVOTRIL [Concomitant]
     Active Substance: CLONAZEPAM
     Dosage: UNK, UNKNOWN
     Route: 065
  9. FENERGAN                           /00033001/ [Concomitant]
     Indication: DYSPEPSIA
     Dosage: UNK, UNKNOWN
     Route: 065

REACTIONS (13)
  - Hand fracture [Unknown]
  - Hypoglycaemia [Not Recovered/Not Resolved]
  - Memory impairment [Unknown]
  - Drug ineffective [Unknown]
  - Depression [Unknown]
  - Fall [Unknown]
  - Tibia fracture [Unknown]
  - Hallucination [Unknown]
  - Injection site discomfort [Unknown]
  - Altered state of consciousness [Unknown]
  - Injection site injury [Recovered/Resolved]
  - Hyperglycaemia [Not Recovered/Not Resolved]
  - Heart rate increased [Recovered/Resolved]
